FAERS Safety Report 24570925 (Version 1)
Quarter: 2024Q4

REPORT INFORMATION
  Report Type: Spontaneous
  Country: DE (occurrence: DE)
  Receive Date: 20241101
  Receipt Date: 20241101
  Transmission Date: 20250114
  Serious: Yes (Life-Threatening, Other)
  Sender: JOHNSON AND JOHNSON
  Company Number: DE-BAYER-2024A153878

PATIENT
  Age: 87 Year

DRUGS (2)
  1. RIVAROXABAN [Suspect]
     Active Substance: RIVAROXABAN
     Indication: Atrial fibrillation
     Route: 048
  2. APIXABAN [Concomitant]
     Active Substance: APIXABAN

REACTIONS (3)
  - Pericardial haemorrhage [Recovering/Resolving]
  - Haemodynamic instability [Recovering/Resolving]
  - Epistaxis [Unknown]
